FAERS Safety Report 24251520 (Version 1)
Quarter: 2024Q3

REPORT INFORMATION
  Report Type: Spontaneous
  Country: GB (occurrence: GB)
  Receive Date: 20240826
  Receipt Date: 20240826
  Transmission Date: 20241016
  Serious: Yes (Other)
  Sender: ABBVIE
  Company Number: GB-ABBVIE-5887952

PATIENT
  Sex: Female

DRUGS (3)
  1. HUMIRA [Suspect]
     Active Substance: ADALIMUMAB
     Indication: Rheumatoid arthritis
     Route: 058
  2. HUMIRA [Suspect]
     Active Substance: ADALIMUMAB
     Indication: Pain
  3. HUMIRA [Suspect]
     Active Substance: ADALIMUMAB
     Indication: Chronic fatigue syndrome

REACTIONS (4)
  - Abortion spontaneous [Unknown]
  - Ovulation disorder [Unknown]
  - Maternal exposure during pregnancy [Unknown]
  - Failed in vitro fertilisation [Unknown]
